FAERS Safety Report 10495254 (Version 9)
Quarter: 2015Q4

REPORT INFORMATION
  Report Type: Spontaneous
  Country: JP (occurrence: JP)
  Receive Date: 20141003
  Receipt Date: 20151215
  Transmission Date: 20160304
  Serious: Yes (Death, Hospitalization, Other)
  Sender: FDA-Public Use
  Company Number: PHHY2014JP090121

PATIENT
  Age: 66 Year
  Sex: Female

DRUGS (3)
  1. AFINITOR [Suspect]
     Active Substance: EVEROLIMUS
     Dosage: 5 MG, QD
     Route: 048
     Dates: start: 20140705, end: 20140809
  2. AROMASIN [Concomitant]
     Active Substance: EXEMESTANE
     Indication: PRODUCT USED FOR UNKNOWN INDICATION
     Dosage: 25 MG, UNK
     Route: 048
     Dates: start: 20140414, end: 201409
  3. AFINITOR [Suspect]
     Active Substance: EVEROLIMUS
     Indication: BREAST CANCER RECURRENT
     Dosage: 10 MG, QD
     Route: 048
     Dates: start: 20140410, end: 20140605

REACTIONS (14)
  - Acute respiratory distress syndrome [Unknown]
  - Cell marker increased [Recovering/Resolving]
  - Cardiac failure [Unknown]
  - Death [Fatal]
  - Tachypnoea [Unknown]
  - Pyrexia [Unknown]
  - Dyspnoea exertional [Unknown]
  - Stomatitis [Unknown]
  - Hypoxia [Unknown]
  - Interstitial lung disease [Unknown]
  - Hyperlipidaemia [Unknown]
  - Respiratory failure [Unknown]
  - Cough [Recovered/Resolved]
  - Dysgeusia [Unknown]

NARRATIVE: CASE EVENT DATE: 20140428
